FAERS Safety Report 19390269 (Version 10)
Quarter: 2023Q1

REPORT INFORMATION
  Report Type: Spontaneous
  Country: JP (occurrence: JP)
  Receive Date: 20210608
  Receipt Date: 20230324
  Transmission Date: 20230417
  Serious: Yes (Death, Hospitalization, Other)
  Sender: FDA-Public Use
  Company Number: JP-DSJP-DSJ-2021-106222

PATIENT
  Sex: Male
  Weight: 52.5 kg

DRUGS (11)
  1. ENHERTU [Suspect]
     Active Substance: FAM-TRASTUZUMAB DERUXTECAN-NXKI
     Indication: HER2 positive gastric cancer
     Dosage: 6.4 MG/KG, ONCE EVERY 3 WK
     Route: 041
     Dates: start: 20210107, end: 20210107
  2. ENHERTU [Suspect]
     Active Substance: FAM-TRASTUZUMAB DERUXTECAN-NXKI
     Indication: Gastric cancer recurrent
     Dosage: 4.4 MG/KG, ONCE EVERY 3 WK
     Route: 041
     Dates: start: 20210215, end: 20210215
  3. ENHERTU [Suspect]
     Active Substance: FAM-TRASTUZUMAB DERUXTECAN-NXKI
     Dosage: 2 MG/KG, ONCE EVERY 3 WK
     Route: 041
     Dates: start: 20210412, end: 20210412
  4. ENHERTU [Suspect]
     Active Substance: FAM-TRASTUZUMAB DERUXTECAN-NXKI
     Dosage: 3.2 MG/KG, ONCE EVERY 3 WK
     Route: 041
     Dates: start: 20210511, end: 20210511
  5. ENHERTU [Suspect]
     Active Substance: FAM-TRASTUZUMAB DERUXTECAN-NXKI
     Dosage: 2 MG/KG, ONCE EVERY 3 WK
     Route: 041
     Dates: start: 20210621, end: 20210621
  6. APREPITANT [Concomitant]
     Active Substance: APREPITANT
     Indication: Vomiting
     Dosage: 125 MG, SINGLE
     Route: 048
     Dates: start: 20210107
  7. ALOXI [Concomitant]
     Active Substance: PALONOSETRON HYDROCHLORIDE
     Indication: Vomiting
     Dosage: 0.75 MG, SINGLE
     Route: 051
     Dates: start: 20210107
  8. DEXAMETHASONE SODIUM PHOSPHATE [Concomitant]
     Active Substance: DEXAMETHASONE SODIUM PHOSPHATE
     Indication: Vomiting
     Dosage: 4.95 MG, SINGLE
     Route: 051
     Dates: start: 20210107
  9. LEUCON                             /00300201/ [Concomitant]
     Dosage: 30 MG
     Route: 048
  10. LOPERAMIDE                         /00384302/ [Concomitant]
     Dosage: 2 MG
     Route: 048
  11. MIDODRINE                          /00592802/ [Concomitant]
     Dosage: 4 MG
     Route: 048

REACTIONS (13)
  - Decreased appetite [Recovered/Resolved]
  - Malaise [Recovered/Resolved]
  - White blood cell count decreased [Recovered/Resolved]
  - Neutrophil count decreased [Recovered/Resolved]
  - Anaemia [Recovered/Resolved]
  - Eastern Cooperative Oncology Group performance status worsened [Recovered/Resolved]
  - Disease progression [Fatal]
  - Decreased appetite [Unknown]
  - Malaise [Unknown]
  - Decreased appetite [Unknown]
  - Malaise [Unknown]
  - Decreased appetite [Unknown]
  - Malaise [Unknown]

NARRATIVE: CASE EVENT DATE: 20210101
